FAERS Safety Report 4382507-9 (Version None)
Quarter: 2004Q2

REPORT INFORMATION
  Report Type: 
  Country: None (occurrence: None)
  Receive Date: 20040617
  Receipt Date: 20040608
  Transmission Date: 20050107
  Serious: Yes (Hospitalization)
  Sender: FDA-Public Use
  Company Number: K200400790

PATIENT
  Age: 73 Year
  Sex: Female

DRUGS (1)
  1. ALTACE [Suspect]
     Indication: HYPERTENSION
     Dosage: 5 MG, QD, ORAL
     Route: 048
     Dates: start: 20040410, end: 20040423

REACTIONS (6)
  - CARDIAC ARREST [None]
  - CONDITION AGGRAVATED [None]
  - DIALYSIS [None]
  - PERICARDIAL EFFUSION [None]
  - RENAL ARTERY THROMBOSIS [None]
  - RENAL FAILURE [None]
